FAERS Safety Report 4576233-0 (Version None)
Quarter: 2005Q1

REPORT INFORMATION
  Report Type: 
  Country: None (occurrence: None)
  Receive Date: 20050204
  Receipt Date: 20050124
  Transmission Date: 20050727
  Serious: No
  Sender: FDA-Public Use
  Company Number: 05H-087-0288099-00

PATIENT
  Age: 54 Year
  Sex: Female

DRUGS (7)
  1. LEUCOVORIN CALCIUM [Suspect]
     Indication: COLORECTAL CANCER METASTATIC
     Dosage: 10 MG/M2, DAI 1
  2. IRINOTECAN HCL [Suspect]
     Indication: COLORECTAL CANCER METASTATIC
     Dosage: 100 MG/M2, INTRAVENOUS INFUSION,DAY 1
     Route: 042
  3. FLUOROURACIL [Suspect]
     Indication: COLORECTAL CANCER METASTATIC
     Dosage: 400 MG/M2, INTRAVENOUS INJECTION, DAY 1
     Route: 042
  4. GRANISETRON [Concomitant]
  5. DEXAMETHASONE [Concomitant]
  6. ANTIBIOTICS [Concomitant]
  7. GRANULOCYTE COLONY STIMULATING FACTOR [Concomitant]

REACTIONS (4)
  - DIARRHOEA [None]
  - HAEMATOTOXICITY [None]
  - NEUTROPENIA [None]
  - PYREXIA [None]
